FAERS Safety Report 16540035 (Version 1)
Quarter: 2019Q3

REPORT INFORMATION
  Report Type: Report from Study
  Country: ES (occurrence: ES)
  Receive Date: 20190708
  Receipt Date: 20190708
  Transmission Date: 20191004
  Serious: Yes (Hospitalization)
  Sender: FDA-Public Use
  Company Number: ES-TEVA-2019-ES-1072635

PATIENT
  Age: 87 Year
  Sex: Male

DRUGS (5)
  1. EUTIROX 50 MICROGRAMOS COMPRIMIDOS , 100 COMPRIMIDOS [Interacting]
     Active Substance: LEVOTHYROXINE SODIUM
     Indication: HYPOTENSION
     Route: 048
     Dates: start: 2000
  2. AMIODARONA HIDROCLORURO (392CH) [Interacting]
     Active Substance: AMIODARONE
     Indication: ATRIAL FIBRILLATION
     Route: 048
     Dates: start: 201902
  3. ALOPURINOL (318A) [Suspect]
     Active Substance: ALLOPURINOL
     Indication: HYPERURICAEMIA
     Route: 048
     Dates: start: 2000
  4. SIMVASTATINA (1023A) [Interacting]
     Active Substance: SIMVASTATIN
     Indication: DYSLIPIDAEMIA
     Route: 048
     Dates: start: 200907
  5. ACENOCUMAROL (220A) [Interacting]
     Active Substance: ACENOCOUMAROL
     Indication: THROMBOSIS PROPHYLAXIS
     Route: 048
     Dates: start: 2017

REACTIONS (2)
  - Epistaxis [Recovered/Resolved]
  - Drug interaction [Unknown]

NARRATIVE: CASE EVENT DATE: 20190307
